FAERS Safety Report 19665827 (Version 1)
Quarter: 2021Q3

REPORT INFORMATION
  Report Type: Spontaneous
  Country: US (occurrence: US)
  Receive Date: 20210805
  Receipt Date: 20210805
  Transmission Date: 20211014
  Serious: Yes (Hospitalization)
  Sender: FDA-Public Use
  Company Number: None

PATIENT

DRUGS (1)
  1. XELJANZ XR [Suspect]
     Active Substance: TOFACITINIB CITRATE
     Indication: PROSTATIC SPECIFIC ANTIGEN
     Dosage: ?          QUANTITY:1 TABLET(S);?
     Route: 048
     Dates: start: 20200425, end: 20210131

REACTIONS (3)
  - Stress cardiomyopathy [None]
  - Headache [None]
  - Myocardial infarction [None]

NARRATIVE: CASE EVENT DATE: 20200929
